FAERS Safety Report 6848417-X (Version None)
Quarter: 2010Q3

REPORT INFORMATION
  Report Type: 
  Country: None (occurrence: None)
  Receive Date: 20100716
  Receipt Date: 20100701
  Transmission Date: 20110219
  Serious: Yes (Death, Hospitalization)
  Sender: FDA-Public Use
  Company Number: KR-JNJFOC-20100506370

PATIENT
  Sex: Female
  Weight: 52 kg

DRUGS (17)
  1. GOLIMUMAB [Suspect]
     Indication: RHEUMATOID ARTHRITIS
     Route: 058
  2. GOLIMUMAB [Suspect]
     Route: 058
  3. GOLIMUMAB [Suspect]
     Route: 058
  4. PLACEBO [Suspect]
     Indication: RHEUMATOID ARTHRITIS
     Route: 058
  5. METHOTREXATE [Suspect]
     Indication: RHEUMATOID ARTHRITIS
     Route: 048
  6. METHOTREXATE [Suspect]
     Route: 048
  7. ACETAMINOPHEN [Concomitant]
     Route: 048
  8. TRAMADOL [Concomitant]
     Route: 048
  9. FOLATE [Concomitant]
     Route: 048
  10. FENOPROFEN CALCIUM [Concomitant]
     Route: 048
  11. PREDNISOLONE [Concomitant]
  12. CALCIUM CARBONATE [Concomitant]
     Route: 048
  13. MISOPROSTOL [Concomitant]
     Route: 048
  14. AMLODIPINE [Concomitant]
     Route: 048
  15. HYDROCHLOROTHIAZIDE [Concomitant]
     Route: 048
  16. METHOTREXATE [Concomitant]
     Route: 048
  17. FEROBA [Concomitant]
     Route: 048

REACTIONS (3)
  - CHOLECYSTITIS [None]
  - DISSEMINATED TUBERCULOSIS [None]
  - SEPTIC SHOCK [None]
